FAERS Safety Report 21659676 (Version 1)
Quarter: 2022Q4

REPORT INFORMATION
  Report Type: Report from Study
  Country: IT (occurrence: IT)
  Receive Date: 20221129
  Receipt Date: 20221129
  Transmission Date: 20230113
  Serious: Yes (Other)
  Sender: FDA-Public Use
  Company Number: IT-SUN PHARMACEUTICAL INDUSTRIES LTD-2022R1-366277

PATIENT
  Sex: Male

DRUGS (4)
  1. CARBOPLATIN [Suspect]
     Active Substance: CARBOPLATIN
     Indication: Diencephalic syndrome
     Dosage: UNK
     Route: 065
     Dates: end: 2012
  2. CARBOPLATIN [Suspect]
     Active Substance: CARBOPLATIN
     Indication: Glioma
  3. VINCRISTINE [Suspect]
     Active Substance: VINCRISTINE
     Indication: Diencephalic syndrome
     Dosage: UNK
     Route: 065
     Dates: end: 2012
  4. VINCRISTINE [Suspect]
     Active Substance: VINCRISTINE
     Indication: Glioma

REACTIONS (1)
  - Disease progression [Unknown]
